APPROVED DRUG PRODUCT: LORATADINE
Active Ingredient: LORATADINE
Strength: 10MG
Dosage Form/Route: TABLET, ORALLY DISINTEGRATING;ORAL
Application: A075822 | Product #001
Applicant: GLAXOSMITHKLINE CONSUMER HEALTHCARE HOLDINGS US LLC
Approved: Feb 10, 2003 | RLD: No | RS: No | Type: DISCN